FAERS Safety Report 17183849 (Version 2)
Quarter: 2020Q1

REPORT INFORMATION
  Report Type: Report from Study
  Country: BD (occurrence: BD)
  Receive Date: 20191220
  Receipt Date: 20200311
  Transmission Date: 20200409
  Serious: Yes (Hospitalization, Other)
  Sender: FDA-Public Use
  Company Number: NVSC2019BD074153

PATIENT
  Sex: Female

DRUGS (2)
  1. BILASTINA [Concomitant]
     Active Substance: BILASTINE
     Indication: PSORIASIS
     Dosage: 20 MG, QD
     Route: 048
  2. COSENTYX [Suspect]
     Active Substance: SECUKINUMAB
     Indication: PSORIATIC ARTHROPATHY
     Route: 065

REACTIONS (9)
  - Ulcer [Unknown]
  - Wheezing [Unknown]
  - Secretion discharge [Unknown]
  - Skin discolouration [Unknown]
  - Productive cough [Unknown]
  - Rhinorrhoea [Unknown]
  - Nasopharyngitis [Unknown]
  - Psoriatic arthropathy [Unknown]
  - Joint swelling [Unknown]

NARRATIVE: CASE EVENT DATE: 201911
